FAERS Safety Report 11904258 (Version 5)
Quarter: 2016Q1

REPORT INFORMATION
  Report Type: Report from Study
  Country: CH (occurrence: CH)
  Receive Date: 20160108
  Receipt Date: 20160329
  Transmission Date: 20160526
  Serious: Yes (Hospitalization, Other)
  Sender: FDA-Public Use
  Company Number: CH-ABBVIE-16P-151-1534037-00

PATIENT
  Age: 72 Year
  Sex: Male

DRUGS (4)
  1. DOPAMINERGIC AGENTS [Concomitant]
     Indication: PRODUCT USED FOR UNKNOWN INDICATION
     Dosage: HIGH DOSAGE
     Route: 048
  2. MORPHIUM [Concomitant]
     Indication: PRODUCT USED FOR UNKNOWN INDICATION
  3. DUODOPA [Suspect]
     Active Substance: CARBIDOPA\LEVODOPA
     Indication: PARKINSON^S DISEASE
     Dosage: 24H THERAPY, MD: 7ML, CD,DAY: 4.4ML/H, CD, NIGHT: 2.2ML/H, EX D: 1.5ML
     Route: 050
     Dates: start: 201505
  4. DUODOPA [Suspect]
     Active Substance: CARBIDOPA\LEVODOPA
     Route: 045
     Dates: start: 201603

REACTIONS (9)
  - Decubitus ulcer [Unknown]
  - Complication associated with device [Recovered/Resolved]
  - Skin sensitisation [Unknown]
  - Abscess [Unknown]
  - Swelling [Unknown]
  - Soft tissue inflammation [Unknown]
  - Purulent discharge [Unknown]
  - Lividity [Unknown]
  - Eschar [Unknown]

NARRATIVE: CASE EVENT DATE: 20151215
